FAERS Safety Report 7065496-8 (Version None)
Quarter: 2010Q4

REPORT INFORMATION
  Report Type: 
  Country: None (occurrence: None)
  Receive Date: 20101027
  Receipt Date: 20101018
  Transmission Date: 20110411
  Serious: No
  Sender: FDA-Public Use
  Company Number: US-PFIZER INC-2010132766

PATIENT
  Sex: Male
  Weight: 81.6 kg

DRUGS (6)
  1. LYRICA [Suspect]
     Indication: PAIN
     Dosage: 75 MG, 2X/DAY
     Route: 048
     Dates: start: 20101015, end: 20101016
  2. TRANDATE [Concomitant]
     Indication: BLOOD PRESSURE DIASTOLIC
     Dosage: UNK
  3. AVAPRO [Concomitant]
     Indication: BLOOD PRESSURE SYSTOLIC
     Dosage: UNK
  4. MS CONTIN [Concomitant]
     Indication: PAIN
     Dosage: 30 MG, 3X/DAY
  5. GABAPENTIN [Concomitant]
     Indication: PAIN
     Dosage: 900 MG, 3X/DAY
  6. HYDROCODONE [Concomitant]
     Indication: PAIN
     Dosage: 10/325 MG, 6X/DAY

REACTIONS (2)
  - MUSCULOSKELETAL STIFFNESS [None]
  - NECK PAIN [None]
